FAERS Safety Report 9456364 (Version 1)
Quarter: 2013Q3

REPORT INFORMATION
  Report Type: Report from Study
  Country: CA (occurrence: CA)
  Receive Date: 20130813
  Receipt Date: 20130813
  Transmission Date: 20140515
  Serious: Yes (Other)
  Sender: FDA-Public Use
  Company Number: PHHY2013CA082660

PATIENT
  Age: 88 Year
  Sex: Female

DRUGS (4)
  1. ACLASTA [Suspect]
     Indication: OSTEOPOROSIS
     Dosage: UNK
     Route: 042
     Dates: start: 20090203
  2. ACLASTA [Suspect]
     Dosage: UNK
     Route: 042
     Dates: start: 20100426
  3. ACLASTA [Suspect]
     Dosage: UNK
     Route: 042
     Dates: start: 20110628
  4. ACLASTA [Suspect]
     Dosage: UNK
     Route: 042
     Dates: start: 20120802

REACTIONS (5)
  - Renal failure chronic [Unknown]
  - Glomerular filtration rate increased [Unknown]
  - Gamma-glutamyltransferase increased [Unknown]
  - Lymphocyte count decreased [Unknown]
  - Red cell distribution width increased [Unknown]
